FAERS Safety Report 8435008-2 (Version None)
Quarter: 2012Q2

REPORT INFORMATION
  Report Type: 
  Country: None (occurrence: None)
  Receive Date: 20120614
  Receipt Date: 20120608
  Transmission Date: 20120825
  Serious: No
  Sender: FDA-Public Use
  Company Number: US-PFIZER INC-2012112337

PATIENT
  Sex: Female

DRUGS (3)
  1. TRAZODONE [Concomitant]
     Indication: INSOMNIA
     Dosage: 50 MG, UNK
  2. EFFEXOR [Suspect]
     Indication: DEPRESSION
     Dosage: UNK
     Route: 048
  3. PRAZOSIN [Concomitant]
     Indication: POST-TRAUMATIC STRESS DISORDER
     Dosage: 1 MG, UNK

REACTIONS (1)
  - DRUG WITHDRAWAL SYNDROME [None]
